FAERS Safety Report 7549520-1 (Version None)
Quarter: 2011Q2

REPORT INFORMATION
  Report Type: 
  Country: None (occurrence: None)
  Receive Date: 20110615
  Receipt Date: 20041126
  Transmission Date: 20111010
  Serious: Yes (Hospitalization)
  Sender: FDA-Public Use
  Company Number: PHFR2004GB04405

PATIENT
  Sex: Male

DRUGS (1)
  1. CLOZAPINE [Suspect]
     Indication: SCHIZOPHRENIA
     Dosage: 350 MG, QD
     Dates: start: 20021104

REACTIONS (4)
  - LOWER RESPIRATORY TRACT INFECTION [None]
  - VENTRICULAR FAILURE [None]
  - DYSPNOEA [None]
  - THROMBOSIS [None]
